FAERS Safety Report 13890235 (Version 3)
Quarter: 2018Q1

REPORT INFORMATION
  Report Type: Spontaneous
  Country: US (occurrence: US)
  Receive Date: 20170822
  Receipt Date: 20180206
  Transmission Date: 20180508
  Serious: No
  Sender: FDA-Public Use
  Company Number: US-JNJFOC-20170804311

PATIENT
  Age: 55 Year
  Sex: Male
  Weight: 90.72 kg

DRUGS (4)
  1. COGENTIN [Concomitant]
     Active Substance: BENZTROPINE MESYLATE
     Indication: PRODUCT USED FOR UNKNOWN INDICATION
     Route: 065
  2. INVEGA SUSTENNA [Suspect]
     Active Substance: PALIPERIDONE PALMITATE
     Indication: SCHIZOPHRENIA
     Route: 030
     Dates: start: 20170802
  3. BENZTROPINE [Concomitant]
     Active Substance: BENZTROPINE
     Route: 048
     Dates: start: 20140930
  4. INVEGA SUSTENNA [Suspect]
     Active Substance: PALIPERIDONE PALMITATE
     Indication: SCHIZOPHRENIA
     Route: 030
     Dates: start: 20141023

REACTIONS (5)
  - Injection site pain [Recovered/Resolved]
  - Irritability [Unknown]
  - Needle issue [Unknown]
  - Drug dose omission [Unknown]
  - Restlessness [Unknown]

NARRATIVE: CASE EVENT DATE: 20170802
